FAERS Safety Report 10447957 (Version 2)
Quarter: 2014Q4

REPORT INFORMATION
  Report Type: Report from Study
  Country: JP (occurrence: JP)
  Receive Date: 20140911
  Receipt Date: 20141027
  Transmission Date: 20150528
  Serious: Yes (Other)
  Sender: FDA-Public Use
  Company Number: JP-JNJFOC-20140906872

PATIENT
  Age: 52 Year
  Sex: Male
  Weight: 72 kg

DRUGS (7)
  1. SOVRIAD [Suspect]
     Active Substance: SIMEPREVIR
     Indication: CHRONIC HEPATITIS C
     Route: 048
     Dates: start: 20140606, end: 20140807
  2. RIBAVIRIN. [Suspect]
     Active Substance: RIBAVIRIN
     Indication: CHRONIC HEPATITIS C
     Route: 048
     Dates: start: 20140606, end: 20140807
  3. PEGINTRON [Suspect]
     Active Substance: PEGINTERFERON ALFA-2B
     Indication: CHRONIC HEPATITIS C
     Route: 058
     Dates: start: 20140606, end: 20140725
  4. FAMOSTAGINE-D [Concomitant]
     Route: 048
     Dates: end: 20140807
  5. MARZULENE-S [Concomitant]
     Active Substance: SODIUM GUALENATE
     Route: 048
     Dates: end: 20140807
  6. TEPRENONE [Concomitant]
     Active Substance: TEPRENONE
     Route: 048
     Dates: end: 20140807
  7. ALLEGRA [Concomitant]
     Active Substance: FEXOFENADINE HYDROCHLORIDE
     Route: 048
     Dates: start: 20140606, end: 20140807

REACTIONS (3)
  - Hyperuricaemia [Recovered/Resolved]
  - Pyrexia [Recovering/Resolving]
  - Jaundice [Recovering/Resolving]

NARRATIVE: CASE EVENT DATE: 20140606
